FAERS Safety Report 20420261 (Version 1)
Quarter: 2022Q1

REPORT INFORMATION
  Report Type: Spontaneous
  Country: US (occurrence: None)
  Receive Date: 20220202
  Receipt Date: 20220202
  Transmission Date: 20220423
  Serious: Yes (Death)
  Sender: FDA-Public Use
  Company Number: None

PATIENT
  Age: 59 Year
  Sex: Female

DRUGS (1)
  1. GOCOVRI [Suspect]
     Active Substance: AMANTADINE
     Indication: Parkinson^s disease
     Dosage: FREQUENCY : AT BEDTIME;?
     Route: 048
     Dates: start: 20211211

REACTIONS (1)
  - Death [None]

NARRATIVE: CASE EVENT DATE: 20220130
